FAERS Safety Report 18193439 (Version 2)
Quarter: 2021Q2

REPORT INFORMATION
  Report Type: Spontaneous
  Country: AU (occurrence: AU)
  Receive Date: 20200825
  Receipt Date: 20210428
  Transmission Date: 20210717
  Serious: Yes (Hospitalization)
  Sender: FDA-Public Use
  Company Number: AU-CELGENEUS-AUS-20200705577

PATIENT
  Age: 73 Year
  Sex: Male
  Weight: 82 kg

DRUGS (41)
  1. CHLORAMPHENICOL [Concomitant]
     Active Substance: CHLORAMPHENICOL
     Indication: EYE INFECTION
     Dosage: 1 OTHER
     Route: 061
     Dates: start: 20200117
  2. LOPERAMIDE HYDROCHLORIDE. [Concomitant]
     Active Substance: LOPERAMIDE HYDROCHLORIDE
     Route: 065
     Dates: start: 20200710
  3. TACROLIMUS. [Concomitant]
     Active Substance: TACROLIMUS
     Indication: ROSACEA
     Dosage: 2GTT
     Route: 061
     Dates: start: 20200417
  4. OXYCONTIN [Concomitant]
     Active Substance: OXYCODONE HYDROCHLORIDE
     Indication: BACK PAIN
     Dosage: 60 MILLIGRAM
     Route: 048
     Dates: start: 2012
  5. SERETIDE [Concomitant]
     Active Substance: FLUTICASONE PROPIONATE\SALMETEROL XINAFOATE
     Indication: ASTHMA
     Dosage: 1 PUFF
     Route: 055
     Dates: start: 20160512
  6. CETIRIZINE HYDROCHLORIDE. [Concomitant]
     Active Substance: CETIRIZINE HYDROCHLORIDE
     Indication: ALLERGY TO ANIMAL
     Route: 048
     Dates: start: 20200312
  7. AMOXICILLIN AND CLAVULANATE POTASSIUM [Concomitant]
     Active Substance: AMOXICILLIN\CLAVULANATE POTASSIUM
     Indication: PNEUMOTHORAX
     Dosage: 500/125MG
     Route: 048
     Dates: start: 20200603, end: 20200608
  8. APIXABAN [Concomitant]
     Active Substance: APIXABAN
     Indication: DEEP VEIN THROMBOSIS
     Dosage: 10 MILLIGRAM
     Route: 048
     Dates: start: 20190328
  9. DUYUNGSON [Concomitant]
     Indication: HEADACHE
     Route: 065
  10. METHYLPREDNISOLONE ACEPONATE [Concomitant]
     Active Substance: METHYLPREDNISOLONE ACEPONATE
     Indication: POSTOPERATIVE WOUND INFECTION
     Route: 061
     Dates: start: 20191002
  11. ATORVASTATIN CALCIUM. [Concomitant]
     Active Substance: ATORVASTATIN CALCIUM
     Indication: BLOOD CHOLESTEROL INCREASED
     Dosage: 20 MILLIGRAM
     Route: 048
     Dates: start: 2011
  12. IMMUNOGLOBULIN HUMAN [Concomitant]
     Active Substance: HUMAN IMMUNOGLOBULIN G
     Indication: INFECTION PROPHYLAXIS
     Dosage: 46800 GRAM
     Route: 041
     Dates: start: 20190328
  13. PARACETAMOL [Concomitant]
     Active Substance: ACETAMINOPHEN
     Indication: ARTHRITIS
     Dosage: 3990 MILLIGRAM
     Route: 048
     Dates: start: 20180816
  14. AMPHOTERICIN B. [Concomitant]
     Active Substance: AMPHOTERICIN B
     Indication: ORAL CANDIDIASIS
     Route: 048
     Dates: start: 20191121
  15. CIPROFLOXACIN. [Concomitant]
     Active Substance: CIPROFLOXACIN
     Indication: IRRITABLE BOWEL SYNDROME
     Route: 048
     Dates: start: 20200710
  16. ERGOCALCIFEROL. [Concomitant]
     Active Substance: ERGOCALCIFEROL
     Indication: VITAMIN D DEFICIENCY
     Route: 048
     Dates: start: 20200419
  17. TESTOSTERONE. [Concomitant]
     Active Substance: TESTOSTERONE
     Indication: BLOOD TESTOSTERONE DECREASED
     Route: 061
     Dates: start: 20190524
  18. MAGNESIUM [Concomitant]
     Active Substance: MAGNESIUM
     Indication: MUSCLE SPASMS
     Dosage: 1600 MILLIGRAM
     Route: 048
     Dates: start: 202001
  19. MAGNESIUM [Concomitant]
     Active Substance: MAGNESIUM
     Dosage: 1600 MILLIGRAM
     Route: 048
     Dates: start: 20200617
  20. DEXAMETHASONE. [Suspect]
     Active Substance: DEXAMETHASONE
     Indication: PLASMA CELL MYELOMA
     Dosage: 20 MILLIGRAM
     Route: 048
     Dates: start: 20150112, end: 20200723
  21. DOXYLAMINE SUCCINATE. [Concomitant]
     Active Substance: DOXYLAMINE SUCCINATE
     Indication: INSOMNIA
     Route: 048
     Dates: start: 20190607
  22. ALUDROX [Concomitant]
     Indication: MUSCLE SPASMS
     Route: 065
  23. LENALIDOMIDE [Suspect]
     Active Substance: LENALIDOMIDE
     Indication: PLASMA CELL MYELOMA
     Dosage: 25 MILLIGRAM
     Route: 048
     Dates: start: 20150112, end: 20200723
  24. CHLORAMPHENICOL [Concomitant]
     Active Substance: CHLORAMPHENICOL
     Indication: SQUAMOUS CELL CARCINOMA
     Dosage: 1 OTHER
     Route: 061
     Dates: start: 20191201
  25. IBUPROFEN. [Concomitant]
     Active Substance: IBUPROFEN
     Indication: HEADACHE
     Route: 048
     Dates: start: 20191228
  26. MELOXICAM. [Concomitant]
     Active Substance: MELOXICAM
     Indication: NECK PAIN
     Dosage: 15 MILLIGRAM
     Route: 048
     Dates: start: 20200108
  27. ZOLEDRONIC ACID [Concomitant]
     Active Substance: ZOLEDRONIC ACID
     Indication: OSTEOPOROSIS PROPHYLAXIS
     Dosage: .1333 MILLIGRAM
     Route: 041
     Dates: start: 20200423
  28. ACITRETIN. [Concomitant]
     Active Substance: ACITRETIN
     Indication: NEOPLASM PROPHYLAXIS
     Dosage: 10 MILLIGRAM
     Route: 048
     Dates: start: 20200604
  29. FLUCLOXACILLIN [Concomitant]
     Active Substance: FLUCLOXACILLIN
     Indication: RASH PUSTULAR
     Dosage: 2000 MILLIGRAM
     Route: 048
     Dates: start: 20200524
  30. VALTREX [Concomitant]
     Active Substance: VALACYCLOVIR HYDROCHLORIDE
     Indication: PROPHYLAXIS
     Dosage: 500 MILLIGRAM
     Route: 048
     Dates: start: 2011
  31. PANTOPRAZOLE SODIUM SESQUIHYDRATE [Concomitant]
     Active Substance: PANTOPRAZOLE SODIUM
     Indication: GASTRIC ULCER
     Dosage: 40 MILLIGRAM
     Route: 048
     Dates: start: 2013
  32. MOMETASONE FUROATE. [Concomitant]
     Active Substance: MOMETASONE FUROATE
     Indication: NASOPHARYNGITIS
     Dosage: 2 SPRAY
     Route: 045
     Dates: start: 20180717
  33. OXYCODONE [Concomitant]
     Active Substance: OXYCODONE
     Indication: BACK PAIN
     Route: 048
     Dates: start: 201203
  34. LYSINE [Concomitant]
     Active Substance: LYSINE
     Indication: PROPHYLAXIS
     Dosage: 1000 MILLIGRAM
     Route: 048
     Dates: start: 201512
  35. FISH OIL [Concomitant]
     Active Substance: FISH OIL
     Indication: VITAMIN SUPPLEMENTATION
     Dosage: 2000 MILLIGRAM
     Route: 048
     Dates: start: 20190202
  36. DARATUMUMAB [Concomitant]
     Active Substance: DARATUMUMAB
     Indication: PLASMA CELL MYELOMA
     Dosage: 1312 MILLIGRAM
     Route: 041
     Dates: start: 20150112, end: 20200616
  37. PROMETHAZINE [Concomitant]
     Active Substance: PROMETHAZINE HYDROCHLORIDE
     Indication: ALLERGY TO ANIMAL
     Route: 048
     Dates: start: 20200312
  38. LOPERAMIDE HYDROCHLORIDE. [Concomitant]
     Active Substance: LOPERAMIDE HYDROCHLORIDE
     Indication: IRRITABLE BOWEL SYNDROME
     Route: 065
     Dates: start: 20200710
  39. FUROSEMIDE. [Concomitant]
     Active Substance: FUROSEMIDE
     Indication: OEDEMA PERIPHERAL
     Dosage: 20 MILLIGRAM
     Route: 048
     Dates: start: 20180524
  40. DOXYCYCLINE. [Concomitant]
     Active Substance: DOXYCYCLINE
     Indication: ROSACEA
     Dosage: 50 MILLIGRAM
     Route: 048
     Dates: start: 20200417, end: 20200610
  41. DENCORUB [Concomitant]
     Indication: HEADACHE
     Dosage: 1 OTHER
     Route: 061
     Dates: start: 20200101

REACTIONS (3)
  - Squamous cell carcinoma of skin [Recovered/Resolved]
  - Infective exacerbation of bronchiectasis [Recovered/Resolved]
  - Squamous cell carcinoma of skin [Recovered/Resolved]

NARRATIVE: CASE EVENT DATE: 20200703
